FAERS Safety Report 5646749-4 (Version None)
Quarter: 2008Q1

REPORT INFORMATION
  Report Type: 
  Country: None (occurrence: None)
  Receive Date: 20080303
  Receipt Date: 20080221
  Transmission Date: 20080703
  Serious: Yes (Other)
  Sender: FDA-Public Use
  Company Number: GR-ROCHE-549316

PATIENT
  Age: 70 Year
  Sex: Female

DRUGS (7)
  1. BONIVA [Suspect]
     Indication: OSTEOPOROSIS
     Dosage: FORM: FILM COATED TABLETS
     Route: 048
     Dates: start: 20071212
  2. AEROLIN [Concomitant]
     Indication: ASTHMA
  3. PLAVIX [Concomitant]
  4. ZYLORIC [Concomitant]
     Indication: HYPERURICAEMIA
  5. KETEK [Concomitant]
     Indication: ASTHMA
  6. CORTISONE [Concomitant]
     Indication: ASTHMA
  7. SIMVASTATIN [Concomitant]
     Indication: HYPERLIPIDAEMIA
     Dosage: DRUG: PLACOL

REACTIONS (2)
  - BONE PAIN [None]
  - ECCHYMOSIS [None]
